FAERS Safety Report 12760170 (Version 1)
Quarter: 2016Q3

REPORT INFORMATION
  Report Type: Report from Study
  Country: US (occurrence: US)
  Receive Date: 20160919
  Receipt Date: 20160919
  Transmission Date: 20161109
  Serious: Yes (Hospitalization, Other)
  Sender: FDA-Public Use
  Company Number: US-BAYER-2016-161581

PATIENT
  Age: 64 Year
  Sex: Male

DRUGS (1)
  1. NEXAVAR [Suspect]
     Active Substance: SORAFENIB
     Indication: HEPATOCELLULAR CARCINOMA
     Dosage: 400 MG, BID
     Route: 048
     Dates: start: 20160806, end: 20160829

REACTIONS (7)
  - Gait disturbance [None]
  - Nausea [None]
  - Thrombosis [None]
  - Fatigue [None]
  - Pain [None]
  - Asthenia [None]
  - Mobility decreased [None]

NARRATIVE: CASE EVENT DATE: 201608
